FAERS Safety Report 21855111 (Version 6)
Quarter: 2024Q1

REPORT INFORMATION
  Report Type: Spontaneous
  Country: US (occurrence: US)
  Receive Date: 20230112
  Receipt Date: 20240315
  Transmission Date: 20240409
  Serious: Yes (Other)
  Sender: FDA-Public Use
  Company Number: US-PFIZER INC-PV202300004935

PATIENT
  Age: 64 Year
  Sex: Female

DRUGS (2)
  1. IBRANCE [Suspect]
     Active Substance: PALBOCICLIB
     Dosage: 75 MG
  2. IBRANCE [Suspect]
     Active Substance: PALBOCICLIB
     Dosage: 75 MG, CYCLIC (TAKE ONE TABLET DAILY FOR 3 WEEKS ON FOLLOWED BY 2 WEEK OFF IN A 5-WEEK CYCLE)

REACTIONS (5)
  - Neutropenia [Unknown]
  - Neutrophil count decreased [Unknown]
  - Dental implantation [Unknown]
  - Off label use [Unknown]
  - Product use issue [Unknown]
